FAERS Safety Report 19278184 (Version 1)
Quarter: 2021Q2

REPORT INFORMATION
  Report Type: Spontaneous
  Country: US (occurrence: US)
  Receive Date: 20210519
  Receipt Date: 20210519
  Transmission Date: 20210717
  Serious: Yes (Disabling)
  Sender: FDA-Public Use
  Company Number: None

PATIENT
  Age: 72 Year
  Sex: Male
  Weight: 90 kg

DRUGS (11)
  1. LEVOTHYROXINE. [Concomitant]
     Active Substance: LEVOTHYROXINE
  2. ELIQUIS [Concomitant]
     Active Substance: APIXABAN
  3. GABAPENTIN. [Concomitant]
     Active Substance: GABAPENTIN
  4. METOPROLOL. [Concomitant]
     Active Substance: METOPROLOL
  5. ASPIRIN (BABY) [Concomitant]
     Active Substance: ASPIRIN
  6. MIRTAZAPINE 45MG [Suspect]
     Active Substance: MIRTAZAPINE
     Indication: DEPRESSION
     Route: 048
  7. ZETIA [Concomitant]
     Active Substance: EZETIMIBE
  8. NIACIN. [Concomitant]
     Active Substance: NIACIN
  9. SIMVASTATIN. [Concomitant]
     Active Substance: SIMVASTATIN
  10. FISH OIL [Concomitant]
     Active Substance: FISH OIL
  11. CLOPIDOGREL [Concomitant]
     Active Substance: CLOPIDOGREL BISULFATE

REACTIONS (1)
  - Atrial fibrillation [None]

NARRATIVE: CASE EVENT DATE: 20210210
